FAERS Safety Report 5742068-6 (Version None)
Quarter: 2008Q2

REPORT INFORMATION
  Report Type: 
  Country: None (occurrence: None)
  Receive Date: 20080514
  Receipt Date: 20080514
  Transmission Date: 20081010
  Serious: Yes (Other)
  Sender: FDA-Public Use
  Company Number: None

PATIENT
  Age: 38 Year
  Sex: Female
  Weight: 61.6892 kg

DRUGS (1)
  1. CHANTIX [Suspect]
     Indication: SMOKING CESSATION THERAPY
     Dosage: GRADUALLY INCREASE PER LABEL.
     Dates: start: 20070601, end: 20070801

REACTIONS (4)
  - ANHEDONIA [None]
  - APATHY [None]
  - DEPRESSION [None]
  - DRUG EFFECT DECREASED [None]
